FAERS Safety Report 5747407-8 (Version None)
Quarter: 2008Q2

REPORT INFORMATION
  Report Type: 
  Country: None (occurrence: None)
  Receive Date: 20080523
  Receipt Date: 20080516
  Transmission Date: 20081010
  Serious: Yes (Hospitalization)
  Sender: FDA-Public Use
  Company Number: DE-JNJFOC-20080503020

PATIENT
  Age: 52 Year
  Sex: Female

DRUGS (7)
  1. REMICADE [Suspect]
     Route: 042
  2. REMICADE [Suspect]
     Route: 042
  3. REMICADE [Suspect]
     Indication: CROHN'S DISEASE
     Route: 042
  4. PREDNISONE TAB [Suspect]
     Indication: MYELITIS
  5. MESALAZIN [Concomitant]
  6. ALPHA-CALCIDOL [Concomitant]
  7. ESOMEPRAZOLE MAGNESIUM [Concomitant]

REACTIONS (2)
  - DIABETES MELLITUS [None]
  - MYELITIS [None]
